FAERS Safety Report 13293447 (Version 5)
Quarter: 2017Q4

REPORT INFORMATION
  Report Type: Spontaneous
  Country: JP (occurrence: JP)
  Receive Date: 20170303
  Receipt Date: 20171020
  Transmission Date: 20180320
  Serious: Yes (Hospitalization, Other)
  Sender: FDA-Public Use
  Company Number: JP-ASTRAZENECA-2017SE22454

PATIENT
  Age: 989 Month
  Sex: Female
  Weight: 44 kg

DRUGS (17)
  1. URITOS OD [Concomitant]
     Route: 048
  2. OLMETEC OD [Concomitant]
     Active Substance: OLMESARTAN MEDOXOMIL
     Route: 048
  3. ALDACTONE A [Concomitant]
     Active Substance: SPIRONOLACTONE
     Route: 048
  4. ZOPICLONE [Concomitant]
     Active Substance: ZOPICLONE
     Route: 048
  5. IRESSA [Suspect]
     Active Substance: GEFITINIB
     Indication: LUNG ADENOCARCINOMA
     Route: 048
     Dates: start: 20170130, end: 20170212
  6. LIMAPROST ALFADEX [Concomitant]
     Active Substance: LIMAPROST
     Dosage: 15.0UG UNKNOWN
     Route: 048
  7. JANUVIA [Concomitant]
     Active Substance: SITAGLIPTIN PHOSPHATE
     Route: 048
  8. FAMOTIDINE. [Concomitant]
     Active Substance: FAMOTIDINE
     Route: 048
  9. LIPITOR [Concomitant]
     Active Substance: ATORVASTATIN CALCIUM
     Route: 048
  10. WARFARIN [Suspect]
     Active Substance: WARFARIN
     Dosage: 3.0MG UNKNOWN
     Route: 048
     Dates: end: 20170212
  11. GINSENG [Concomitant]
     Active Substance: ASIAN GINSENG
     Route: 048
  12. CALONAL [Concomitant]
     Active Substance: ACETAMINOPHEN
     Route: 048
  13. KERLONG [Concomitant]
     Active Substance: BETAXOLOL HYDROCHLORIDE
     Route: 048
  14. BROTIZOLAM [Concomitant]
     Active Substance: BROTIZOLAM
     Route: 048
  15. METGLUCO [Concomitant]
     Active Substance: METFORMIN HYDROCHLORIDE
     Route: 048
  16. BAYASPIRIN [Concomitant]
     Active Substance: ASPIRIN
     Route: 048
  17. ADALAT CC [Concomitant]
     Active Substance: NIFEDIPINE
     Route: 048

REACTIONS (8)
  - Renal impairment [Recovered/Resolved]
  - Asthenia [Recovered/Resolved]
  - Mouth haemorrhage [Recovered/Resolved]
  - Haematuria [Recovered/Resolved]
  - International normalised ratio increased [Recovered/Resolved]
  - Anaemia [Unknown]
  - Faeces discoloured [Recovered/Resolved]
  - Diarrhoea [Recovered/Resolved]

NARRATIVE: CASE EVENT DATE: 201702
